FAERS Safety Report 10514935 (Version 1)
Quarter: 2014Q4

REPORT INFORMATION
  Report Type: Spontaneous
  Country: US (occurrence: US)
  Receive Date: 20141013
  Receipt Date: 20141013
  Transmission Date: 20150528
  Serious: No
  Sender: FDA-Public Use
  Company Number: US-009507513-1410USA004845

PATIENT
  Age: 62 Year
  Sex: Male

DRUGS (1)
  1. NASONEX [Suspect]
     Active Substance: MOMETASONE FUROATE
     Indication: POLYP
     Dosage: STRENGTH REPORTED AS 50, UNITS NOT REPORTED,TWO SPRAYS IN EACH NOSTRIL, TWICE DAILY
     Route: 045
     Dates: start: 201406

REACTIONS (1)
  - Cough [Not Recovered/Not Resolved]

NARRATIVE: CASE EVENT DATE: 201409
